FAERS Safety Report 12014774 (Version 1)
Quarter: 2016Q1

REPORT INFORMATION
  Report Type: Spontaneous
  Country: US (occurrence: US)
  Receive Date: 20160205
  Receipt Date: 20160205
  Transmission Date: 20160526
  Serious: No
  Sender: FDA-Public Use
  Company Number: US-AMGEN-USASP2015078575

PATIENT
  Age: 65 Year
  Sex: Female
  Weight: 74.5 kg

DRUGS (1)
  1. NEULASTA [Suspect]
     Active Substance: PEGFILGRASTIM
     Indication: NEUTROPENIA
     Dosage: 6 MG/6ML, X1
     Route: 058
     Dates: start: 20150730

REACTIONS (1)
  - Device issue [Unknown]
